FAERS Safety Report 17436458 (Version 1)
Quarter: 2020Q1

REPORT INFORMATION
  Report Type: Spontaneous
  Country: US (occurrence: US)
  Receive Date: 20200219
  Receipt Date: 20200219
  Transmission Date: 20200409
  Serious: Yes (Hospitalization)
  Sender: FDA-Public Use
  Company Number: US-ASTRAZENECA-2020SE23138

PATIENT
  Sex: Female
  Weight: 70.3 kg

DRUGS (3)
  1. FASENRA [Suspect]
     Active Substance: BENRALIZUMAB
     Indication: CHRONIC OBSTRUCTIVE PULMONARY DISEASE
     Route: 058
  2. CORTIZONE 10 [Concomitant]
     Active Substance: HYDROCORTISONE
  3. PLAVIX [Concomitant]
     Active Substance: CLOPIDOGREL BISULFATE

REACTIONS (12)
  - Feeling abnormal [Unknown]
  - Asthma [Unknown]
  - Myocardial infarction [Unknown]
  - Depression [Unknown]
  - Insomnia [Unknown]
  - Back pain [Unknown]
  - Osteoarthritis [Unknown]
  - Musculoskeletal stiffness [Unknown]
  - Muscle spasms [Unknown]
  - Urticaria [Unknown]
  - Rash [Unknown]
  - Limb discomfort [Unknown]
